FAERS Safety Report 26142910 (Version 2)
Quarter: 2025Q4

REPORT INFORMATION
  Report Type: Spontaneous
  Country: EU (occurrence: EU)
  Receive Date: 20251211
  Receipt Date: 20251222
  Transmission Date: 20260117
  Serious: Yes (Hospitalization, Other)
  Sender: Haleon PLC
  Company Number: EU-SANDOZ-SDZ2025DE092389

PATIENT
  Sex: Male

DRUGS (7)
  1. DICLOFENAC [Suspect]
     Active Substance: DICLOFENAC
     Indication: Product used for unknown indication
     Dosage: 150 MG  ROUTE:UNKNOWN
     Dates: start: 20200701, end: 20210401
  2. DICLOFENAC [Suspect]
     Active Substance: DICLOFENAC
     Dosage: 100 MG  ROUTE:UNKNOWN
  3. DICLOFENAC [Suspect]
     Active Substance: DICLOFENAC
     Dosage: 150 MG ROUTE:UNKNOWN
     Dates: start: 20040909, end: 20191101
  4. DICLOFENAC [Suspect]
     Active Substance: DICLOFENAC
     Dosage: 150 MG  ROUTE:UNKNOWN
     Dates: start: 20191102, end: 20200201
  5. METHOTREXATE [Suspect]
     Active Substance: METHOTREXATE
     Indication: Product used for unknown indication
     Dosage: 15 MG ROUTE:UNKNOWN
  6. COSENTYX [Suspect]
     Active Substance: SECUKINUMAB
     Indication: Product used for unknown indication
     Dosage: 150 MG ROUTE:UNKNOWN
  7. COSENTYX [Concomitant]
     Active Substance: SECUKINUMAB
     Indication: Product used for unknown indication

REACTIONS (1)
  - Oesophageal stenosis [Unknown]

NARRATIVE: CASE EVENT DATE: 20231222
